FAERS Safety Report 24910684 (Version 2)
Quarter: 2025Q1

REPORT INFORMATION
  Report Type: Spontaneous
  Country: FR (occurrence: FR)
  Receive Date: 20250131
  Receipt Date: 20250204
  Transmission Date: 20250408
  Serious: Yes (Other)
  Sender: PFIZER
  Company Number: None

PATIENT
  Age: 1 Day
  Sex: Female

DRUGS (5)
  1. ALPROSTADIL [Suspect]
     Active Substance: ALPROSTADIL
     Indication: Catheter management
     Route: 064
     Dates: start: 20241216, end: 20241218
  2. ALPROSTADIL [Suspect]
     Active Substance: ALPROSTADIL
     Route: 064
     Dates: start: 20241218, end: 20241225
  3. ALPROSTADIL [Suspect]
     Active Substance: ALPROSTADIL
     Route: 064
     Dates: start: 20241225, end: 20250103
  4. ALPROSTADIL [Suspect]
     Active Substance: ALPROSTADIL
     Route: 064
     Dates: start: 20250103, end: 20250107
  5. ALPROSTADIL [Suspect]
     Active Substance: ALPROSTADIL

REACTIONS (2)
  - Maternal exposure during pregnancy [Not Recovered/Not Resolved]
  - Gastrointestinal pain [Not Recovered/Not Resolved]

NARRATIVE: CASE EVENT DATE: 20250101
